FAERS Safety Report 9410750 (Version 1)
Quarter: 2013Q3

REPORT INFORMATION
  Report Type: Spontaneous
  Country: FR (occurrence: FR)
  Receive Date: 20130719
  Receipt Date: 20130719
  Transmission Date: 20140515
  Serious: Yes (Life-Threatening, Hospitalization)
  Sender: FDA-Public Use
  Company Number: FR-009507513-1307FRA005813

PATIENT
  Age: 56 Year
  Sex: Male

DRUGS (18)
  1. ESMERON [Suspect]
     Indication: ANAESTHESIA
     Dosage: UNK
     Route: 042
     Dates: start: 20130108, end: 20130108
  2. SELOKEN [Concomitant]
  3. ZELITREX [Concomitant]
  4. BACTRIM [Concomitant]
  5. LOXAPAC (LOXAPINE SUCCINATE) [Concomitant]
  6. PARKINANE RETARD [Concomitant]
  7. PAROXETINE [Concomitant]
  8. PRAVASTATIN SODIUM [Concomitant]
  9. SPIRIVA [Concomitant]
  10. ZOPICLONE [Concomitant]
  11. LEDERFOLINE [Concomitant]
  12. KARDEGIC [Concomitant]
  13. CAPTOPRIL [Concomitant]
  14. LOVENOX [Concomitant]
  15. MIDAZOLAM [Concomitant]
  16. XYLOCAINE [Concomitant]
  17. EPINEPHRINE [Concomitant]
  18. REMIFENTANIL HYDROCHLORIDE [Concomitant]

REACTIONS (1)
  - Circulatory collapse [Recovered/Resolved]
